FAERS Safety Report 7802690-X (Version None)
Quarter: 2011Q4

REPORT INFORMATION
  Report Type: 
  Country: None (occurrence: None)
  Receive Date: 20111007
  Receipt Date: 20111003
  Transmission Date: 20120403
  Serious: Yes (Life-Threatening, Hospitalization)
  Sender: FDA-Public Use
  Company Number: PHHY2011FR87511

PATIENT
  Sex: Male

DRUGS (7)
  1. CARBOPLATIN [Suspect]
     Indication: SQUAMOUS CELL CARCINOMA
     Dosage: 300 MG/M2, TIW
     Dates: start: 20110721
  2. REYATAZ [Interacting]
     Indication: HIV TEST POSITIVE
     Dosage: UNK UKN, UNK
     Dates: end: 20110818
  3. DOCETAXEL [Interacting]
     Indication: SQUAMOUS CELL CARCINOMA
     Dosage: 752 MG/M2, TIW
     Dates: start: 20110721, end: 20110811
  4. KEPPRA [Concomitant]
     Dosage: UNK UKN, UNK
     Dates: start: 20090101
  5. TRUVADA [Suspect]
     Indication: HIV TEST POSITIVE
     Dosage: UNK UKN, UNK
     Dates: end: 20110818
  6. TEGRETOL [Suspect]
     Indication: EPILEPSY
     Dosage: UNK UKN, UNK
     Dates: start: 20090101, end: 20110921
  7. NORVIR [Interacting]
     Indication: HIV TEST POSITIVE
     Dosage: UNK UKN, UNK
     Dates: end: 20110818

REACTIONS (5)
  - SKIN EXFOLIATION [None]
  - DYSPHAGIA [None]
  - DERMATITIS BULLOUS [None]
  - MUCOSAL INFLAMMATION [None]
  - NEUTROPENIA [None]
